FAERS Safety Report 18232477 (Version 1)
Quarter: 2020Q3

REPORT INFORMATION
  Report Type: Spontaneous
  Country: US (occurrence: US)
  Receive Date: 20200904
  Receipt Date: 20200904
  Transmission Date: 20201103
  Serious: No
  Sender: FDA-Public Use
  Company Number: NVSC2020US237846

PATIENT
  Age: 65 Year
  Sex: Female

DRUGS (1)
  1. VALSARTAN. [Suspect]
     Active Substance: VALSARTAN
     Indication: PRODUCT USED FOR UNKNOWN INDICATION
     Dosage: 24.26 MG, BID
     Route: 048
     Dates: start: 202007

REACTIONS (12)
  - Blood sodium decreased [Unknown]
  - Headache [Unknown]
  - Hypertension [Recovering/Resolving]
  - Vomiting [Recovering/Resolving]
  - Hypersensitivity [Unknown]
  - Dizziness [Recovering/Resolving]
  - Cough [Unknown]
  - Blood pressure decreased [Recovering/Resolving]
  - Vertigo [Recovering/Resolving]
  - Dyspnoea [Recovering/Resolving]
  - Blood glucose decreased [Unknown]
  - Ill-defined disorder [Unknown]

NARRATIVE: CASE EVENT DATE: 202007
